FAERS Safety Report 4394809-0 (Version None)
Quarter: 2004Q2

REPORT INFORMATION
  Report Type: 
  Country: None (occurrence: None)
  Receive Date: 20040621
  Receipt Date: 20031031
  Transmission Date: 20050107
  Serious: Yes (Hospitalization, Other)
  Sender: FDA-Public Use
  Company Number: USA-2003-0010634

PATIENT
  Age: 46 Year
  Sex: Female

DRUGS (7)
  1. OXYCONTIN [Suspect]
     Indication: PAIN
     Dosage: 40 MG, BID, ORAL
     Route: 048
  2. CELEBREX [Concomitant]
  3. CLONIDINE HCL [Concomitant]
  4. FLEXERIL [Concomitant]
  5. PRILOSEC [Concomitant]
  6. SOMA [Concomitant]
  7. WELLBUTRIN [Concomitant]

REACTIONS (17)
  - ABDOMINAL PAIN LOWER [None]
  - AMNESIA [None]
  - ANXIETY [None]
  - DEPRESSION [None]
  - DIARRHOEA [None]
  - DISTURBANCE IN ATTENTION [None]
  - DRUG DEPENDENCE [None]
  - DRUG INEFFECTIVE [None]
  - DRUG TOLERANCE [None]
  - DRUG WITHDRAWAL SYNDROME [None]
  - EMOTIONAL DISTRESS [None]
  - HALLUCINATION [None]
  - INSOMNIA [None]
  - MOTOR DYSFUNCTION [None]
  - MUSCLE CRAMP [None]
  - PAIN [None]
  - SUPRAPUBIC PAIN [None]
